FAERS Safety Report 7773113-4 (Version None)
Quarter: 2011Q3

REPORT INFORMATION
  Report Type: 
  Country: None (occurrence: None)
  Receive Date: 20110922
  Receipt Date: 20110524
  Transmission Date: 20111222
  Serious: Yes (Hospitalization)
  Sender: FDA-Public Use
  Company Number: US-ASTRAZENECA-2009UW11289

PATIENT
  Age: 525 Month
  Sex: Male

DRUGS (7)
  1. DOXYCYCLINE [Concomitant]
     Dates: start: 20080101
  2. CYMBALTA [Concomitant]
     Dosage: 60 T Q DAY
     Dates: start: 20060724
  3. NEURONTIN [Concomitant]
     Dates: start: 20080101
  4. SEROQUEL [Suspect]
     Route: 048
     Dates: start: 20070101
  5. AMBIEN CR [Concomitant]
     Dosage: 12.5 T Q DAY
     Dates: start: 20070821
  6. SEROQUEL [Suspect]
     Indication: DEPRESSION
     Dosage: 100 TO 200, 2 Q NITE
     Route: 048
     Dates: start: 20060724
  7. ASCORBIC ACID [Concomitant]
     Dates: start: 20080101

REACTIONS (2)
  - CONVULSION [None]
  - DIABETES MELLITUS [None]
